FAERS Safety Report 16668018 (Version 3)
Quarter: 2019Q3

REPORT INFORMATION
  Report Type: Spontaneous
  Country: JP (occurrence: JP)
  Receive Date: 20190805
  Receipt Date: 20190930
  Transmission Date: 20191004
  Serious: Yes (Death)
  Sender: FDA-Public Use
  Company Number: JP-PFIZER INC-2019333759

PATIENT
  Age: 68 Year
  Sex: Female

DRUGS (13)
  1. LEVOFOLINATE YAKULT [Suspect]
     Active Substance: LEVOLEUCOVORIN CALCIUM
     Indication: PANCREATIC CARCINOMA
     Dosage: UNK, CYCLIC (10 COURSES OF SYSTEMIC CHEMOTHERAPY)
     Route: 041
     Dates: start: 201401
  2. LEVOFOLINATE YAKULT [Suspect]
     Active Substance: LEVOLEUCOVORIN CALCIUM
     Dosage: UNK, CYCLIC (4 COURSES)
     Dates: start: 201806
  3. CAMPTO [Suspect]
     Active Substance: IRINOTECAN
     Indication: PANCREATIC CARCINOMA
     Dosage: UNK, CYCLIC (10 COURSES OF SYSTEMIC CHEMOTHERAPY)
     Route: 041
     Dates: start: 201401
  4. 5-FU [FLUOROURACIL] [Suspect]
     Active Substance: FLUOROURACIL
     Dosage: UNK, CYCLIC (4 COURSES)
     Dates: start: 201806
  5. ELPLAT [Suspect]
     Active Substance: OXALIPLATIN
     Dosage: UNK, CYCLIC (4 COURSES)
     Dates: start: 201806
  6. TS-1 [Suspect]
     Active Substance: GIMERACIL\OTERACIL\TEGAFUR
     Indication: PANCREATIC CARCINOMA
     Dosage: UNK, CYCLIC  (FOUR COURSES)
     Route: 048
     Dates: start: 201501
  7. 5-FU [FLUOROURACIL] [Suspect]
     Active Substance: FLUOROURACIL
     Dosage: UNK, CYCLIC (2 COURSES)
  8. ELPLAT [Suspect]
     Active Substance: OXALIPLATIN
     Indication: PANCREATIC CARCINOMA
     Dosage: UNK UNK, CYCLIC 10 COURSES OF SYSTEMIC CHEMOTHERAPY USING FOLFIRINOX
     Route: 041
     Dates: start: 201401
  9. ELPLAT [Suspect]
     Active Substance: OXALIPLATIN
     Dosage: UNK, CYCLIC (2 COURSES)
     Route: 041
  10. LEVOFOLINATE YAKULT [Suspect]
     Active Substance: LEVOLEUCOVORIN CALCIUM
     Dosage: UNK, CYCLIC (2 COURSES)
     Route: 041
  11. GEMCITABINE HYDROCHLORIDE. [Suspect]
     Active Substance: GEMCITABINE HYDROCHLORIDE
     Indication: PANCREATIC CARCINOMA
     Dosage: UNK, CYCLIC 3 COURSES OF GEM
     Route: 041
     Dates: start: 201609
  12. TS-1 [Suspect]
     Active Substance: GIMERACIL\OTERACIL\TEGAFUR
     Dosage: UNK, CYCLIC (10 COURSES)
     Route: 048
     Dates: start: 201611
  13. 5-FU [FLUOROURACIL] [Suspect]
     Active Substance: FLUOROURACIL
     Indication: PANCREATIC CARCINOMA
     Dosage: UNK, CYCLIC (10 COURSES OF SYSTEMIC CHEMOTHERAPY)
     Dates: start: 201401

REACTIONS (1)
  - Interstitial lung disease [Fatal]
